FAERS Safety Report 12631174 (Version 2)
Quarter: 2016Q3

REPORT INFORMATION
  Report Type: Spontaneous
  Country: US (occurrence: US)
  Receive Date: 20160808
  Receipt Date: 20160808
  Transmission Date: 20161109
  Serious: No
  Sender: FDA-Public Use
  Company Number: US-BEH-2015052580

PATIENT
  Sex: Female
  Weight: 67 kg

DRUGS (21)
  1. PROTONIX [Concomitant]
     Active Substance: PANTOPRAZOLE SODIUM
  2. ALPHAGAN P [Concomitant]
     Active Substance: BRIMONIDINE TARTRATE
  3. VITAMIN D [Concomitant]
     Active Substance: CHOLECALCIFEROL
  4. CALCIUM D [Concomitant]
     Active Substance: CALCIUM\VITAMIN D
  5. PROGESTERONE. [Concomitant]
     Active Substance: PROGESTERONE
  6. HIZENTRA [Suspect]
     Active Substance: HUMAN IMMUNOGLOBULIN G
     Indication: SELECTIVE IGA IMMUNODEFICIENCY
     Dosage: 2 GM 10 ML VIAL
     Route: 058
  7. MAGNESIUM [Concomitant]
     Active Substance: MAGNESIUM
  8. DIPHENHYDRAMINE. [Concomitant]
     Active Substance: DIPHENHYDRAMINE
  9. EPIPEN [Concomitant]
     Active Substance: EPINEPHRINE
  10. XALATAN [Concomitant]
     Active Substance: LATANOPROST
  11. AMBIEN [Concomitant]
     Active Substance: ZOLPIDEM TARTRATE
  12. IRON [Concomitant]
     Active Substance: IRON
  13. DORZOLAMIDE [Concomitant]
     Active Substance: DORZOLAMIDE
  14. LATANOPROST. [Concomitant]
     Active Substance: LATANOPROST
  15. HIZENTRA [Suspect]
     Active Substance: HUMAN IMMUNOGLOBULIN G
     Indication: HUMORAL IMMUNE DEFECT
     Dosage: 4 GM 20 ML VIAL
     Route: 058
  16. ACETAMINOPHEN. [Concomitant]
     Active Substance: ACETAMINOPHEN
  17. LMX [Concomitant]
     Active Substance: LIDOCAINE
  18. LEXAPRO [Concomitant]
     Active Substance: ESCITALOPRAM OXALATE
  19. PROBIOTIC [Concomitant]
     Active Substance: PROBIOTICS NOS
  20. TURMERIC [Concomitant]
     Active Substance: TURMERIC
  21. VITAMIN B COMPLEX [Concomitant]
     Active Substance: CYANOCOBALAMIN\DEXPANTHENOL\NIACINAMIDE\PYRIDOXINE HYDROCHLORIDE\RIBOFLAVIN 5^-PHOSPHATE SODIUM\THIAMINE HYDROCHLORIDE\VITAMIN B COMPLEX

REACTIONS (1)
  - Pain [Unknown]
